FAERS Safety Report 16854199 (Version 1)
Quarter: 2019Q3

REPORT INFORMATION
  Report Type: Spontaneous
  Country: US (occurrence: US)
  Receive Date: 20190802
  Receipt Date: 20190802
  Transmission Date: 20191005
  Serious: Yes (Hospitalization)
  Sender: FDA-Public Use
  Company Number: None

PATIENT
  Age: 70 Year
  Sex: Female

DRUGS (1)
  1. PEMBROLIZUMAB. [Suspect]
     Active Substance: PEMBROLIZUMAB
     Indication: NEOPLASM MALIGNANT
     Route: 042
     Dates: start: 20190307, end: 20190307

REACTIONS (10)
  - Chills [None]
  - Packed red blood cell transfusion [None]
  - Delirium [None]
  - Blood pressure increased [None]
  - Tachycardia [None]
  - Transfusion reaction [None]
  - Depressed level of consciousness [None]
  - Hypoxia [None]
  - Body temperature increased [None]
  - Mental status changes [None]

NARRATIVE: CASE EVENT DATE: 20190307
